FAERS Safety Report 25227685 (Version 2)
Quarter: 2025Q2

REPORT INFORMATION
  Report Type: Report from Study
  Country: CA (occurrence: CA)
  Receive Date: 20250422
  Receipt Date: 20250522
  Transmission Date: 20250716
  Serious: Yes (Other)
  Sender: ABBVIE
  Company Number: CA-ABBVIE-6236174

PATIENT
  Age: 61 Year
  Sex: Female

DRUGS (1)
  1. SKYRIZI [Suspect]
     Active Substance: RISANKIZUMAB-RZAA
     Indication: Crohn^s disease
     Route: 058

REACTIONS (4)
  - Lip and/or oral cavity cancer [Unknown]
  - Crohn^s disease [Unknown]
  - Feeding disorder [Unknown]
  - Anal incontinence [Unknown]

NARRATIVE: CASE EVENT DATE: 20241001
